FAERS Safety Report 6191516-9 (Version None)
Quarter: 2009Q2

REPORT INFORMATION
  Report Type: 
  Country: None (occurrence: None)
  Receive Date: 20090513
  Receipt Date: 20090427
  Transmission Date: 20091009
  Serious: Yes (Other)
  Sender: FDA-Public Use
  Company Number: CR-GENENTECH-282473

PATIENT

DRUGS (2)
  1. BEVACIZUMAB [Suspect]
     Indication: MACULAR DEGENERATION
     Route: 031
  2. BEVACIZUMAB [Suspect]
     Indication: CHOROIDAL NEOVASCULARISATION

REACTIONS (5)
  - DISEASE RECURRENCE [None]
  - ENDOPHTHALMITIS [None]
  - HYPERTENSION [None]
  - HYPOTONY OF EYE [None]
  - INTRAOCULAR PRESSURE INCREASED [None]
